FAERS Safety Report 9390345 (Version 2)
Quarter: 2013Q3

REPORT INFORMATION
  Report Type: Spontaneous
  Country: US (occurrence: US)
  Receive Date: 20130709
  Receipt Date: 20130801
  Transmission Date: 20140515
  Serious: No
  Sender: FDA-Public Use
  Company Number: US-009507513-1307USA001138

PATIENT
  Age: 85 Year
  Sex: 0

DRUGS (2)
  1. ASMANEX TWISTHALER [Suspect]
     Dosage: 1 PUFF TWICE DAY
     Route: 055
  2. ASMANEX TWISTHALER [Suspect]
     Dosage: 2 PUFFS TWICE DAY
     Route: 055

REACTIONS (3)
  - Drug dose omission [Unknown]
  - Product quality issue [Unknown]
  - No adverse event [Unknown]
